FAERS Safety Report 6738827-3 (Version None)
Quarter: 2010Q2

REPORT INFORMATION
  Report Type: 
  Country: None (occurrence: None)
  Receive Date: 20100520
  Receipt Date: 20100505
  Transmission Date: 20101027
  Serious: Yes (Death)
  Sender: FDA-Public Use
  Company Number: 584784

PATIENT

DRUGS (7)
  1. BLEOMYCIN SULFATE [Suspect]
     Indication: GERM CELL CANCER
  2. CARBOPLATIN [Suspect]
     Indication: GERM CELL CANCER
     Dosage: 500 MG/M2,
  3. ETOPOSIDE [Suspect]
     Indication: GERM CELL CANCER
     Dosage: 250MG/M2
  4. GRANULOCYTE-COLONY STIMULATING FACTOR [Concomitant]
  5. ACYCLOVIR [Concomitant]
  6. FLUCONAZOLE [Concomitant]
  7. PENTAMIDINE ISETHIONATE [Concomitant]

REACTIONS (8)
  - ACUTE RESPIRATORY DISTRESS SYNDROME [None]
  - HAEMATOTOXICITY [None]
  - MUCOSAL INFLAMMATION [None]
  - MULTI-ORGAN FAILURE [None]
  - NEUTROPENIA [None]
  - PYREXIA [None]
  - SEPSIS [None]
  - VENOOCCLUSIVE DISEASE [None]
